FAERS Safety Report 6234367-9 (Version None)
Quarter: 2009Q2

REPORT INFORMATION
  Report Type: 
  Country: None (occurrence: None)
  Receive Date: 20090616
  Receipt Date: 20090616
  Transmission Date: 20091009
  Serious: Yes (Other)
  Sender: FDA-Public Use
  Company Number: None

PATIENT
  Age: 44 Year
  Sex: Female
  Weight: 61.6892 kg

DRUGS (2)
  1. LEVOTHYROXINE SODIUM [Suspect]
     Indication: HYPOTHYROIDISM
     Dosage: 100 MCG DAILY PO
     Route: 048
     Dates: start: 20080730, end: 20081223
  2. LEVOTHYROXINE SODIUM [Suspect]
     Dosage: 112 MCG DAILY PO
     Route: 048
     Dates: start: 20081223, end: 20090203

REACTIONS (1)
  - LABORATORY TEST ABNORMAL [None]
